FAERS Safety Report 6764368-3 (Version None)
Quarter: 2010Q2

REPORT INFORMATION
  Report Type: 
  Country: None (occurrence: None)
  Receive Date: 20100610
  Receipt Date: 20100602
  Transmission Date: 20101027
  Serious: Yes (Other)
  Sender: FDA-Public Use
  Company Number: DE-PFIZER INC-2010068929

PATIENT
  Sex: Female

DRUGS (1)
  1. SORTIS [Suspect]

REACTIONS (1)
  - AGITATION [None]
